FAERS Safety Report 9047309 (Version 1)
Quarter: 2013Q1

REPORT INFORMATION
  Report Type: Report from Study
  Country: US (occurrence: US)
  Receive Date: 20130131
  Receipt Date: 20130131
  Transmission Date: 20140127
  Serious: Yes (Other)
  Sender: FDA-Public Use
  Company Number: US-ABBOTT-12P-163-0952298-00

PATIENT
  Age: 21 None
  Sex: Female
  Weight: 54.03 kg

DRUGS (4)
  1. HUMIRA 40 MG/0.8 ML PEN [Suspect]
     Indication: CROHN^S DISEASE
     Route: 058
     Dates: start: 200901
  2. ACETAMINOPHEN [Suspect]
     Indication: HEADACHE
  3. ASPIRIN [Suspect]
     Indication: HEADACHE
  4. SALICYLAMIDE [Suspect]
     Indication: HEADACHE

REACTIONS (2)
  - Anaphylactic reaction [Recovered/Resolved]
  - Dermatitis allergic [Recovered/Resolved]
